FAERS Safety Report 21281165 (Version 1)
Quarter: 2022Q3

REPORT INFORMATION
  Report Type: Spontaneous
  Country: CA (occurrence: CA)
  Receive Date: 20220901
  Receipt Date: 20220901
  Transmission Date: 20221027
  Serious: Yes (Other)
  Sender: FDA-Public Use
  Company Number: CA-JNJFOC-20220856481

PATIENT
  Age: 66 Year
  Sex: Male
  Weight: 104 kg

DRUGS (7)
  1. REMICADE [Suspect]
     Active Substance: INFLIXIMAB
     Indication: Colitis ulcerative
     Route: 041
  2. ASPIRIN [Concomitant]
     Active Substance: ASPIRIN
  3. ATORVASTATIN CALCIUM [Concomitant]
     Active Substance: ATORVASTATIN CALCIUM
  4. MESALAMINE [Concomitant]
     Active Substance: MESALAMINE
  5. METOPROLOL [Concomitant]
     Active Substance: METOPROLOL
  6. MESALAMINE [Concomitant]
     Active Substance: MESALAMINE
     Dosage: (DELAYED AND EXTENDED RELEASE)
  7. PREDNISONE [Concomitant]
     Active Substance: PREDNISONE

REACTIONS (8)
  - Enterovesical fistula [Unknown]
  - Diverticulitis [Unknown]
  - Post procedural sepsis [Unknown]
  - Hip arthroplasty [Unknown]
  - Calculus bladder [Unknown]
  - Weight increased [Unknown]
  - Condition aggravated [Unknown]
  - Off label use [Unknown]
